FAERS Safety Report 4811164-X (Version None)
Quarter: 2005Q4

REPORT INFORMATION
  Report Type: 
  Country: None (occurrence: None)
  Receive Date: 20051027
  Receipt Date: 20051018
  Transmission Date: 20060501
  Serious: Yes (Other)
  Sender: FDA-Public Use
  Company Number: 2005AP05497

PATIENT
  Age: 28035 Day
  Sex: Male

DRUGS (5)
  1. TENORMIN [Suspect]
     Route: 048
  2. PLENDIL [Suspect]
     Route: 048
  3. ZYLOPRIM [Suspect]
     Route: 048
     Dates: end: 20050815
  4. EPILIM [Suspect]
     Route: 048
  5. ATIVAN [Concomitant]
     Route: 048

REACTIONS (2)
  - VASCULITIS [None]
  - WOUND SECRETION [None]
